FAERS Safety Report 5016698-3 (Version None)
Quarter: 2006Q2

REPORT INFORMATION
  Report Type: 
  Country: None (occurrence: None)
  Receive Date: 20060602
  Receipt Date: 20060518
  Transmission Date: 20061013
  Serious: Yes (Death, Hospitalization)
  Sender: FDA-Public Use
  Company Number: US-BRISTOL-MYERS SQUIBB COMPANY-13383658

PATIENT
  Age: 67 Year
  Sex: Male
  Weight: 70 kg

DRUGS (12)
  1. ERBITUX [Suspect]
     Indication: NEOPLASM MALIGNANT
     Dosage: 1ST 400 MG/M2(17-JAN), THEN 250 MG/M2 ON 24-JAN, 31-JAN,07-FEB,14-FEB,21-FEB AND 28-FEB-2006(WK 2-7)
     Route: 042
     Dates: start: 20060228, end: 20060228
  2. CISPLATIN [Suspect]
     Indication: NEOPLASM MALIGNANT
     Dosage: 30 MG/M2 WEEK 2 THRU 7-ON 24-JAN, 31-JAN,07-FEB,14-FEB,21-FEB AND 28-FEB-2006(WK 2-7)- 30 MG/M2
     Route: 042
     Dates: start: 20060228, end: 20060228
  3. RADIATION THERAPY [Suspect]
     Indication: NEOPLASM MALIGNANT
     Dosage: INITIATED 23-JAN-06, GIVEN TO 03-MAR-06, ELAPSED DAYS 40, FRACTIONS 30.TOTAL DOSE 66.0 GY.
     Dates: start: 20060303, end: 20060303
  4. TYLENOL W/ CODEINE [Concomitant]
  5. OXYCODONE [Concomitant]
  6. VYTORIN [Concomitant]
  7. ACCUPRIL [Concomitant]
  8. CARDIZEM [Concomitant]
  9. REGLAN [Concomitant]
  10. ATIVAN [Concomitant]
  11. COLACE [Concomitant]
  12. SENOKOT [Concomitant]

REACTIONS (1)
  - PNEUMONITIS [None]
